FAERS Safety Report 23640528 (Version 2)
Quarter: 2024Q1

REPORT INFORMATION
  Report Type: Spontaneous
  Country: FR (occurrence: FR)
  Receive Date: 20240318
  Receipt Date: 20240324
  Transmission Date: 20240409
  Serious: Yes (Hospitalization, Other)
  Sender: FDA-Public Use
  Company Number: FR-AFSSAPS-GR2023001488

PATIENT
  Age: 33 Year
  Sex: Female
  Weight: 90 kg

DRUGS (25)
  1. IBUPROFEN [Suspect]
     Active Substance: IBUPROFEN
     Indication: Headache
     Dosage: 1200 MILLIGRAM, ONCE A DAY,400 MG X3/J
     Route: 048
     Dates: start: 20230930, end: 20231005
  2. IBUPROFEN [Suspect]
     Active Substance: IBUPROFEN
     Indication: Sinus pain
     Dosage: 400 MILLIGRAM, 0.33 DAY
     Route: 048
     Dates: start: 20230930, end: 20231005
  3. OBINUTUZUMAB [Suspect]
     Active Substance: OBINUTUZUMAB
     Indication: Systemic lupus erythematosus
     Dosage: 1000 MILLIGRAM (TOTAL)
     Route: 042
     Dates: start: 20230426, end: 20230426
  4. OBINUTUZUMAB [Suspect]
     Active Substance: OBINUTUZUMAB
     Indication: Lupus nephritis
     Dosage: 1000 MILLIGRAM (TOTAL)
     Route: 042
     Dates: start: 20230516, end: 20230516
  5. CELLCEPT [Suspect]
     Active Substance: MYCOPHENOLATE MOFETIL
     Indication: Systemic lupus erythematosus
     Dosage: 2500 MILLIGRAM, ONCE A DAY,1G-500MG-1G
     Route: 048
     Dates: start: 202103, end: 20231011
  6. BACTRIM [Suspect]
     Active Substance: SULFAMETHOXAZOLE\TRIMETHOPRIM
     Indication: Systemic lupus erythematosus
     Dosage: 1 DOSAGE FORM, ONCE A DAY
     Route: 048
     Dates: start: 20230426, end: 20231011
  7. BACTRIM [Suspect]
     Active Substance: SULFAMETHOXAZOLE\TRIMETHOPRIM
     Indication: Neutropenia
     Dosage: 1 INTERNATIONAL UNIT, ONCE A DAY
     Route: 048
     Dates: start: 20230426, end: 20231011
  8. METHYLPREDNISOLONE [Suspect]
     Active Substance: METHYLPREDNISOLONE
     Indication: Product used for unknown indication
     Dosage: 500 MILLIGRAM
     Route: 042
     Dates: start: 20230426, end: 20230426
  9. METHYLPREDNISOLONE [Suspect]
     Active Substance: METHYLPREDNISOLONE
     Dosage: 500 MILLIGRAM
     Route: 042
     Dates: start: 20230426, end: 20230427
  10. METHYLPREDNISOLONE [Suspect]
     Active Substance: METHYLPREDNISOLONE
     Dosage: 500 MILLIGRAM
     Route: 042
     Dates: start: 20230427, end: 20230427
  11. METHYLPREDNISOLONE [Suspect]
     Active Substance: METHYLPREDNISOLONE
     Dosage: UNK
     Route: 042
     Dates: start: 20230516, end: 20230516
  12. OBINUTUZUMAB [Suspect]
     Active Substance: OBINUTUZUMAB
     Indication: Lupus nephritis
     Dosage: 1000 MILLIGRAM
     Route: 042
     Dates: start: 20230426, end: 20230516
  13. OBINUTUZUMAB [Suspect]
     Active Substance: OBINUTUZUMAB
     Indication: Systemic lupus erythematosus
  14. MYCOPHENOLATE MOFETIL [Suspect]
     Active Substance: MYCOPHENOLATE MOFETIL
     Indication: Lupus nephritis
     Dosage: 2500 MILLIGRAM (1000 MG IN THE MORNING, 500 MG AT NOON AND 1000 MG IN THE EVENING)
     Route: 048
     Dates: start: 20210408, end: 20231011
  15. MYCOPHENOLATE MOFETIL [Suspect]
     Active Substance: MYCOPHENOLATE MOFETIL
     Indication: Systemic lupus erythematosus
  16. LEVOFLOXACIN [Concomitant]
     Active Substance: LEVOFLOXACIN
     Indication: Sinusitis
     Dosage: 500 MILLIGRAM
     Route: 065
     Dates: start: 20231006, end: 20231011
  17. Dolipran [Concomitant]
     Indication: Headache
     Dosage: 4 GRAM
     Route: 065
     Dates: start: 20140205
  18. Renitec [Concomitant]
     Indication: Systemic lupus erythematosus
     Dosage: 20 MILLIGRAM (1 TABLET PER DAY IN THE MORNING)
     Route: 065
     Dates: start: 20210408
  19. LOVENOX [Concomitant]
     Active Substance: ENOXAPARIN SODIUM
     Indication: Product used for unknown indication
     Dosage: 4000 INTERNATIONAL UNIT
     Route: 065
     Dates: start: 20231013
  20. PREDNISONE [Concomitant]
     Active Substance: PREDNISONE
     Indication: Product used for unknown indication
     Dosage: 5 MILLIGRAM (5 MG IN THE MORNING)
     Route: 065
     Dates: start: 20210719
  21. CALTRATE [Concomitant]
     Active Substance: CALCIUM CARBONATE
     Indication: Osteoporosis
     Dosage: UNK
     Route: 065
     Dates: start: 20200316
  22. Spasfon [Concomitant]
     Indication: Abdominal pain
     Dosage: UNK
     Route: 065
     Dates: start: 20200724
  23. EUPANTOL [Concomitant]
     Active Substance: PANTOPRAZOLE SODIUM
     Indication: Product used for unknown indication
     Dosage: 20 MILLIGRAM
     Route: 065
     Dates: start: 20160125, end: 20231011
  24. SYMBICORT [Concomitant]
     Active Substance: BUDESONIDE\FORMOTEROL FUMARATE DIHYDRATE
     Indication: Product used for unknown indication
     Dosage: 200 INTERNATIONAL UNIT (1 PUFF PER DAY)
     Route: 065
     Dates: start: 20131119
  25. PLAQUENIL [Concomitant]
     Active Substance: HYDROXYCHLOROQUINE SULFATE
     Indication: Product used for unknown indication
     Dosage: 400 MILLIGRAM
     Route: 065
     Dates: start: 20200128

REACTIONS (3)
  - Agranulocytosis [Recovered/Resolved]
  - Pyrexia [Recovered/Resolved]
  - Off label use [Unknown]

NARRATIVE: CASE EVENT DATE: 20230426
